FAERS Safety Report 15992170 (Version 1)
Quarter: 2019Q1

REPORT INFORMATION
  Report Type: Spontaneous
  Country: KR (occurrence: KR)
  Receive Date: 20190221
  Receipt Date: 20190221
  Transmission Date: 20190418
  Serious: Yes (Other)
  Sender: FDA-Public Use
  Company Number: KR-BAYER-2019-036307

PATIENT
  Sex: Female

DRUGS (1)
  1. JAYDESS [Suspect]
     Active Substance: LEVONORGESTREL
     Dosage: 17 MCG/24HR, CONT
     Route: 015
     Dates: start: 201710

REACTIONS (5)
  - Drug ineffective [None]
  - Abortion spontaneous [None]
  - Surgery [None]
  - Platelet count decreased [None]
  - Pregnancy with contraceptive device [Recovered/Resolved]
